FAERS Safety Report 4303413-1 (Version None)
Quarter: 2004Q1

REPORT INFORMATION
  Report Type: 
  Country: None (occurrence: None)
  Receive Date: 20040223
  Receipt Date: 20040211
  Transmission Date: 20041129
  Serious: Yes (Life-Threatening, Hospitalization)
  Sender: FDA-Public Use
  Company Number: HQWYE907111FEB04

PATIENT
  Age: 81 Year
  Sex: Male

DRUGS (3)
  1. AMIODARONE HCL [Suspect]
     Route: 048
     Dates: end: 20040103
  2. PLETAL [Suspect]
     Route: 048
     Dates: end: 20040101
  3. PLETAL [Suspect]
     Route: 048
     Dates: start: 20040101, end: 20040101

REACTIONS (2)
  - ALVEOLITIS [None]
  - DRUG HYPERSENSITIVITY [None]
